FAERS Safety Report 23569633 (Version 2)
Quarter: 2024Q1

REPORT INFORMATION
  Report Type: Report from Study
  Country: US (occurrence: US)
  Receive Date: 20240227
  Receipt Date: 20240314
  Transmission Date: 20240410
  Serious: No
  Sender: FDA-Public Use
  Company Number: US-UCBSA-2024008767

PATIENT
  Sex: Female

DRUGS (1)
  1. BRIVARACETAM [Suspect]
     Active Substance: BRIVARACETAM
     Indication: Seizure
     Dosage: 125 MILLIGRAM, 2X/DAY (BID) (100 MILLIGRAM 1 TABLET AND 25 MILLIGRAM 1 TABLET; TWICE DAILY)

REACTIONS (3)
  - Incorrect dose administered [Unknown]
  - Overdose [Unknown]
  - Product dispensing error [Unknown]
